FAERS Safety Report 7421676-0 (Version None)
Quarter: 2011Q1

REPORT INFORMATION
  Report Type: 
  Country: None (occurrence: None)
  Receive Date: 20110302
  Receipt Date: 20101222
  Transmission Date: 20110831
  Serious: No
  Sender: FDA-Public Use
  Company Number: 021707

PATIENT
  Sex: Female

DRUGS (2)
  1. CIMZIA [Suspect]
     Indication: CROHN'S DISEASE
     Dosage: SUBCUTANEOUS, 200 MG 1X/2 WEEKS, PFS (PRE FILLED SYRINGE SUBCUTANEOUS
     Route: 058
     Dates: start: 20100901
  2. CIMZIA [Suspect]
     Indication: CROHN'S DISEASE
     Dosage: SUBCUTANEOUS, 200 MG 1X/2 WEEKS, PFS (PRE FILLED SYRINGE SUBCUTANEOUS
     Route: 058
     Dates: start: 20100101

REACTIONS (7)
  - ALOPECIA [None]
  - FLATULENCE [None]
  - DEFAECATION URGENCY [None]
  - NAUSEA [None]
  - FREQUENT BOWEL MOVEMENTS [None]
  - INSOMNIA [None]
  - FEELING ABNORMAL [None]
